FAERS Safety Report 7676671-3 (Version None)
Quarter: 2011Q3

REPORT INFORMATION
  Report Type: 
  Country: None (occurrence: None)
  Receive Date: 20110811
  Receipt Date: 20110809
  Transmission Date: 20111222
  Serious: Yes (Hospitalization, Other)
  Sender: FDA-Public Use
  Company Number: SE-PFIZER INC-2011182041

PATIENT
  Age: 14 Year
  Sex: Female

DRUGS (5)
  1. NIFEREX [Concomitant]
     Dosage: UNK
  2. CYTOTEC [Suspect]
     Indication: ABORTION INDUCED
     Dosage: 0.8 MG, SINGLE
     Route: 048
     Dates: start: 20110304, end: 20110304
  3. MIFEPRISTONE (MIFEPREX) [Suspect]
     Indication: ABORTION INDUCED
     Dosage: 200 MG, SINGLE
     Route: 048
     Dates: start: 20110302, end: 20110302
  4. ACETAMINOPHEN W/ CODEINE [Concomitant]
     Dosage: UNK
  5. CITALOPRAM [Concomitant]
     Dosage: UNK

REACTIONS (6)
  - CARDIAC FAILURE [None]
  - OFF LABEL USE [None]
  - CIRCULATORY COLLAPSE [None]
  - PULMONARY OEDEMA [None]
  - TOXIC SHOCK SYNDROME [None]
  - ABDOMINAL PAIN [None]
